FAERS Safety Report 16609071 (Version 2)
Quarter: 2019Q3

REPORT INFORMATION
  Report Type: Spontaneous
  Country: GB (occurrence: GB)
  Receive Date: 20190722
  Receipt Date: 20190805
  Transmission Date: 20191004
  Serious: Yes (Death, Hospitalization, Other)
  Sender: FDA-Public Use
  Company Number: GB-MYLANLABS-2019M1068318

PATIENT
  Age: 65 Year
  Sex: Male
  Weight: 76 kg

DRUGS (17)
  1. CLOZAPINE. [Suspect]
     Active Substance: CLOZAPINE
     Dosage: UNK
     Route: 048
     Dates: start: 20180630, end: 201812
  2. MITOXANTRONE [Suspect]
     Active Substance: MITOXANTRONE HYDROCHLORIDE
     Indication: HIGH-GRADE B-CELL LYMPHOMA
     Dosage: UNK
     Dates: start: 201809
  3. CLOZAPINE. [Suspect]
     Active Substance: CLOZAPINE
     Dosage: 100 MILLIGRAM, AM
     Route: 048
     Dates: start: 20180502, end: 20180617
  4. FLUDROCORTISONE [Concomitant]
     Active Substance: FLUDROCORTISONE
     Indication: ORTHOSTATIC HYPOTENSION
     Dosage: 150 UG
     Dates: start: 20180622
  5. CLOZAPINE. [Suspect]
     Active Substance: CLOZAPINE
     Indication: SCHIZOPHRENIA
     Dosage: UNK
     Route: 048
     Dates: start: 20050225, end: 20180427
  6. CYCLOPHOSPHAMIDE. [Suspect]
     Active Substance: CYCLOPHOSPHAMIDE
     Indication: HIGH-GRADE B-CELL LYMPHOMA
     Dosage: UNK
     Dates: start: 201809
  7. LITHIUM. [Concomitant]
     Active Substance: LITHIUM
     Indication: AFFECTIVE DISORDER
     Dosage: UNK
  8. BLEOMYCIN HYDROCHLORIDE [Suspect]
     Active Substance: BLEOMYCIN HYDROCHLORIDE
     Indication: HIGH-GRADE B-CELL LYMPHOMA
     Dosage: UNK
     Dates: start: 201809
  9. LACTULOSE. [Concomitant]
     Active Substance: LACTULOSE
     Indication: CONSTIPATION
     Dosage: UNK
  10. OMEPRAZOLE. [Concomitant]
     Active Substance: OMEPRAZOLE
     Indication: PEPTIC ULCER
     Dosage: UNK
  11. CLOZAPINE. [Suspect]
     Active Substance: CLOZAPINE
     Dosage: 125 MILLIGRAM, PM
     Route: 048
     Dates: start: 20180502, end: 20180617
  12. RITUXIMAB. [Suspect]
     Active Substance: RITUXIMAB
     Indication: HIGH-GRADE B-CELL LYMPHOMA
     Dosage: UNK
     Dates: start: 201809
  13. ARIPIPRAZOLE. [Concomitant]
     Active Substance: ARIPIPRAZOLE
     Indication: PSYCHOTIC DISORDER
     Dosage: UNK
  14. COTRIMOXAZOLE [Concomitant]
     Active Substance: SULFAMETHOXAZOLE\TRIMETHOPRIM
     Indication: PNEUMONIA
     Dosage: UNK
  15. ETOPOSIDE. [Suspect]
     Active Substance: ETOPOSIDE
     Indication: HIGH-GRADE B-CELL LYMPHOMA
     Dosage: UNK
     Dates: start: 201809
  16. VINCRISTINE SULFATE. [Suspect]
     Active Substance: VINCRISTINE SULFATE
     Indication: HIGH-GRADE B-CELL LYMPHOMA
     Dosage: UNK
     Dates: start: 201809
  17. PREDNISOLONE. [Suspect]
     Active Substance: PREDNISOLONE
     Indication: HIGH-GRADE B-CELL LYMPHOMA
     Dosage: UNK
     Dates: start: 201809

REACTIONS (6)
  - Pneumonia [Fatal]
  - High-grade B-cell lymphoma [Not Recovered/Not Resolved]
  - Leukopenia [Recovered/Resolved]
  - Neutrophil count decreased [Recovered/Resolved]
  - Intestinal perforation [Recovered/Resolved]
  - Platelet count decreased [Not Recovered/Not Resolved]

NARRATIVE: CASE EVENT DATE: 20180916
